FAERS Safety Report 17215860 (Version 1)
Quarter: 2019Q4

REPORT INFORMATION
  Report Type: Spontaneous
  Country: FR (occurrence: FR)
  Receive Date: 20191230
  Receipt Date: 20191230
  Transmission Date: 20200122
  Serious: Yes (Hospitalization)
  Sender: FDA-Public Use
  Company Number: FR-GUERBET-FR-20191616

PATIENT
  Age: 93 Year
  Sex: Male

DRUGS (1)
  1. OPTIJECT 300 [Suspect]
     Active Substance: IOVERSOL
     Indication: PULMONARY IMAGING PROCEDURE
     Route: 042
     Dates: start: 20191029, end: 20191029

REACTIONS (3)
  - Rash maculo-papular [Recovered/Resolved]
  - Pruritus [Recovered/Resolved]
  - Papule [Recovered/Resolved]

NARRATIVE: CASE EVENT DATE: 20191031
